FAERS Safety Report 9352098 (Version 1)
Quarter: 2013Q2

REPORT INFORMATION
  Report Type: Spontaneous
  Country: TR (occurrence: TR)
  Receive Date: 20130617
  Receipt Date: 20130617
  Transmission Date: 20140414
  Serious: Yes (Death, Hospitalization)
  Sender: FDA-Public Use
  Company Number: PHHY2013TR061506

PATIENT
  Age: 40 Year
  Sex: Male

DRUGS (1)
  1. OLANZAPINE [Suspect]
     Indication: SCHIZOPHRENIA
     Dosage: 10 MG, PER DAY

REACTIONS (11)
  - Cardio-respiratory arrest [Fatal]
  - Neuroleptic malignant syndrome [Fatal]
  - Altered state of consciousness [Fatal]
  - Aphasia [Fatal]
  - Discomfort [Fatal]
  - Muscle spasms [Fatal]
  - Muscle rigidity [Fatal]
  - Urinary incontinence [Fatal]
  - Faecal incontinence [Fatal]
  - Cerebral atrophy [Unknown]
  - Cerebellar atrophy [Unknown]
